FAERS Safety Report 4929724-4 (Version None)
Quarter: 2006Q1

REPORT INFORMATION
  Report Type: 
  Country: None (occurrence: None)
  Receive Date: 20060301
  Receipt Date: 20050819
  Transmission Date: 20060701
  Serious: Yes (Hospitalization, Disabling)
  Sender: FDA-Public Use
  Company Number: US-MERCK-0508USA03489

PATIENT
  Age: 36 Year
  Sex: Male

DRUGS (2)
  1. VIOXX [Suspect]
     Indication: GOUT
     Route: 048
     Dates: start: 20020821, end: 20030918
  2. ASPIRIN [Concomitant]
     Route: 048

REACTIONS (11)
  - ASTHENIA [None]
  - CEREBROVASCULAR ACCIDENT [None]
  - DIZZINESS [None]
  - DYSPNOEA [None]
  - HEADACHE [None]
  - HYPOAESTHESIA [None]
  - LOWER LIMB FRACTURE [None]
  - NAUSEA [None]
  - NECK PAIN [None]
  - VERTIGO [None]
  - VOMITING [None]
